FAERS Safety Report 9198145 (Version 2)
Quarter: 2013Q2

REPORT INFORMATION
  Report Type: Report from Study
  Country: DE (occurrence: DE)
  Receive Date: 20130329
  Receipt Date: 20130409
  Transmission Date: 20140414
  Serious: Yes (Other)
  Sender: FDA-Public Use
  Company Number: DE-AMGEN-DEUCT2013021256

PATIENT
  Age: 16 Year
  Sex: Female

DRUGS (3)
  1. ETANERCEPT [Suspect]
     Indication: JUVENILE IDIOPATHIC ARTHRITIS
     Dosage: 50 MG, QWK
     Route: 058
     Dates: start: 20080315, end: 20120815
  2. ADALIMUMAB [Concomitant]
     Dosage: EVERY 14 DAYS
     Dates: start: 20120815, end: 20120915
  3. LEFLUNOMIDE [Concomitant]
     Dosage: 20 MG, UNK

REACTIONS (1)
  - Depression [Not Recovered/Not Resolved]
